FAERS Safety Report 22592330 (Version 2)
Quarter: 2023Q2

REPORT INFORMATION
  Report Type: Spontaneous
  Country: BR (occurrence: BR)
  Receive Date: 20230613
  Receipt Date: 20230627
  Transmission Date: 20230722
  Serious: Yes (Other)
  Sender: FDA-Public Use
  Company Number: BR-002147023-NVSC2023BR133047

PATIENT
  Age: 9 Year
  Sex: Male
  Weight: 38 kg

DRUGS (1)
  1. TEGRETOL [Suspect]
     Active Substance: CARBAMAZEPINE
     Indication: Autism spectrum disorder
     Dosage: 10 ML, TID (STARTED 6 YEARS AGO)
     Route: 048

REACTIONS (5)
  - Poor quality sleep [Recovered/Resolved]
  - Nervousness [Recovered/Resolved]
  - Autism spectrum disorder [Unknown]
  - Product availability issue [Unknown]
  - Off label use [Unknown]

NARRATIVE: CASE EVENT DATE: 20220501
